FAERS Safety Report 8971049 (Version 1)
Quarter: 2012Q4

REPORT INFORMATION
  Report Type: 
  Country: US (occurrence: US)
  Receive Date: 20121217
  Receipt Date: 20121217
  Transmission Date: 20130627
  Serious: No
  Sender: FDA-Public Use
  Company Number: US-VERTEX PHARMACEUTICALS INC.-2012-025879

PATIENT
  Sex: Male

DRUGS (8)
  1. VX-950 (TELAPREVIR) [Suspect]
     Indication: HEPATITIS C
     Dosage: 750 mg, tid
     Route: 048
     Dates: start: 2012
  2. PEGASYS [Concomitant]
     Indication: HEPATITIS C
     Dosage: 180 ?g, qw
     Route: 058
     Dates: start: 2012
  3. RIBASPHERE [Concomitant]
     Indication: HEPATITIS C
     Dosage: 600 mg, bid
     Dates: start: 2012
  4. CYMBALTA [Concomitant]
  5. NAPROXEN [Concomitant]
  6. SUMATRIPTAN SUCCINATE [Concomitant]
  7. AMITRIPTYLINE HCL [Concomitant]
  8. ACETAMINOPHEN BUTALBITAL [Concomitant]
     Dosage: 325-50

REACTIONS (2)
  - Lethargy [Unknown]
  - Fatigue [Unknown]
